FAERS Safety Report 15967472 (Version 1)
Quarter: 2019Q1

REPORT INFORMATION
  Report Type: Spontaneous
  Country: US (occurrence: US)
  Receive Date: 20190215
  Receipt Date: 20190215
  Transmission Date: 20190418
  Serious: No
  Sender: FDA-Public Use
  Company Number: US-PERRIGO-18US012706

PATIENT
  Age: 54 Year
  Sex: Female
  Weight: 77.1 kg

DRUGS (4)
  1. CETIRIZINE HYDROCHLORIDE. [Suspect]
     Active Substance: CETIRIZINE HYDROCHLORIDE
     Dosage: 80 MG, SINGLE
     Route: 048
     Dates: start: 20181106, end: 20181106
  2. VITAMINS NOS [Concomitant]
     Active Substance: VITAMINS
     Indication: SUPPLEMENTATION THERAPY
     Dosage: UNK
     Route: 065
  3. CETIRIZINE HYDROCHLORIDE. [Suspect]
     Active Substance: CETIRIZINE HYDROCHLORIDE
     Indication: PERENNIAL ALLERGY
     Dosage: 10 MG, 1 TO 2 TIMES DAILY
     Route: 048
     Dates: start: 2016
  4. PERPHENAZINE. [Concomitant]
     Active Substance: PERPHENAZINE
     Indication: BIPOLAR DISORDER
     Dosage: UNK
     Route: 065
     Dates: start: 2011

REACTIONS (5)
  - Abdominal pain upper [Recovered/Resolved]
  - Accidental overdose [Recovered/Resolved]
  - Dry throat [Recovered/Resolved]
  - Inappropriate schedule of product administration [Unknown]
  - Nasal dryness [Recovered/Resolved]

NARRATIVE: CASE EVENT DATE: 2016
